FAERS Safety Report 5599071-9 (Version None)
Quarter: 2008Q1

REPORT INFORMATION
  Report Type: 
  Country: None (occurrence: None)
  Receive Date: 20080122
  Receipt Date: 20080116
  Transmission Date: 20080703
  Serious: Yes (Hospitalization)
  Sender: FDA-Public Use
  Company Number: GB-BOEHRINGER INGELHEIM PHARMACEUTICALS, INC.-2007-DE-06574GD

PATIENT
  Age: 75 Year
  Sex: Male

DRUGS (1)
  1. TIOTROPIUM-BROMIDE [Suspect]
     Indication: CHRONIC OBSTRUCTIVE PULMONARY DISEASE
     Route: 055
     Dates: start: 20030926

REACTIONS (5)
  - ARRHYTHMIA [None]
  - HAEMATURIA [None]
  - HEMIPLEGIA [None]
  - ISCHAEMIC STROKE [None]
  - PYELONEPHRITIS ACUTE [None]
